FAERS Safety Report 26071282 (Version 2)
Quarter: 2025Q4

REPORT INFORMATION
  Report Type: Spontaneous
  Country: US (occurrence: US)
  Receive Date: 20251120
  Receipt Date: 20251222
  Transmission Date: 20260117
  Serious: No
  Sender: ROCHE
  Company Number: US-ROCHE-10000436716

PATIENT
  Sex: Female

DRUGS (19)
  1. ACTEMRA [Suspect]
     Active Substance: TOCILIZUMAB
     Indication: Idiopathic pulmonary fibrosis
     Route: 058
  2. ACTEMRA [Suspect]
     Active Substance: TOCILIZUMAB
  3. ALBUTEROL SU AER 108 [Concomitant]
  4. DULCOLAX TBE 5 MG [Concomitant]
  5. TYLENOL CAP 325 MG [Concomitant]
     Route: 048
  6. ASPIRIN LOW TBE 81 MG [Concomitant]
  7. B12 SUB 5000 MCG [Concomitant]
  8. CEPHALEXIN CAP 250MG [Concomitant]
  9. EZETIMIBE TAB 10 MG [Concomitant]
  10. FOLIC ACID TAB 800MCG [Concomitant]
  11. HYDROXYCHLOR TAB 200 MG [Concomitant]
  12. LEVOTHYROXIN TAB 150MCG [Concomitant]
  13. LINZESS CAP 190MCG [Concomitant]
  14. LOSARTAN POT TAB 25 MG [Concomitant]
  15. OXYBUTENIN C CAP 5MG [Concomitant]
  16. PANTOPRAZOLE TB 40MG [Concomitant]
  17. SULFASALAZIN TAB 500MG [Concomitant]
  18. SYMBICORT AER 160.4.5 MCG [Concomitant]
  19. VITAMIN D3 POW [Concomitant]

REACTIONS (8)
  - Cough [Not Recovered/Not Resolved]
  - Headache [Not Recovered/Not Resolved]
  - Sneezing [Not Recovered/Not Resolved]
  - Dysphonia [Not Recovered/Not Resolved]
  - Product dose omission issue [Unknown]
  - Exposure via skin contact [Unknown]
  - Productive cough [Not Recovered/Not Resolved]
  - Upper-airway cough syndrome [Not Recovered/Not Resolved]
